FAERS Safety Report 18502966 (Version 3)
Quarter: 2020Q4

REPORT INFORMATION
  Report Type: Spontaneous
  Country: NO (occurrence: NO)
  Receive Date: 20201113
  Receipt Date: 20201125
  Transmission Date: 20210114
  Serious: Yes (Disabling)
  Sender: FDA-Public Use
  Company Number: NVSC2020NO299238

PATIENT
  Age: 22 Year
  Sex: Female

DRUGS (14)
  1. HIPREX [Suspect]
     Active Substance: METHENAMINE HIPPURATE
     Indication: PROPHYLAXIS URINARY TRACT INFECTION
     Dosage: 1 DF,Q12H (1+0+1+0) (J01XX05)
     Route: 065
  2. TRIMETOPRIM [Suspect]
     Active Substance: TRIMETHOPRIM
     Indication: URINARY TRACT INFECTION
     Dosage: 1 DF, Q12H (1 + 0 + 1 + 0 (UNKNOWN START / END DATE - NOT IN USE NOW) (J01EA01)
     Route: 048
  3. LAMISIL [Suspect]
     Active Substance: TERBINAFINE HYDROCHLORIDE
     Indication: FUNGAL INFECTION
     Dosage: UNK (APPLY IN A THIN LAYER TWICE DAILY FOR 2-3 WEEKS (UNKNOWN START / END DATE - NOT IN USE NOW) (D0
     Route: 003
  4. VIMOVO [Suspect]
     Active Substance: ESOMEPRAZOLE MAGNESIUM\NAPROXEN
     Indication: PAIN
     Dosage: 1 DF, Q12H (1+0+1+0) (M01AE52)
     Route: 048
  5. SELEXID (PIVMECILLINAM) [Suspect]
     Active Substance: AMDINOCILLIN PIVOXIL
     Indication: URINARY TRACT INFECTION
     Dosage: 1 DF, Q8H (1 + 1 + 1 + 0 - UNKNOWN WHEN SHE TOOK THE CURE, NOT IN USE NOW) (J01CA08)
     Route: 048
  6. PROTOPIC [Suspect]
     Active Substance: TACROLIMUS
     Indication: ECZEMA
     Dosage: 1 DF, Q12H (APPLY IN A THIN LAYER X 2) ()
     Route: 061
  7. LAKTULOSE [Suspect]
     Active Substance: LACTULOSE
     Indication: PRODUCT USED FOR UNKNOWN INDICATION
     Dosage: 15 ML, Q12H (15 ML MORNING AND EVENING - UNKNOWN START / END DATE (NOT IN USE NOW)
     Route: 048
  8. KETORAX [Suspect]
     Active Substance: KETOBEMIDONE HYDROCHLORIDE
     Indication: PAIN
     Dosage: 1 DECADE
     Route: 048
  9. FUSIDINE [Suspect]
     Active Substance: FUSIDIC ACID
     Indication: PRODUCT USED FOR UNKNOWN INDICATION
     Dosage: 1 DF, Q12H (APPLY 2-3 TIMES DAILY (UNKNOWN START / END DATE - NOT IN USE NOW) (D06AX01)
     Route: 003
  10. TRAMADOL ACTAVIS [Suspect]
     Active Substance: TRAMADOL
     Indication: PAIN
     Dosage: 1 DF, PRN (1 TABLET AS REQUIRED UP TO 3 TIMES A DAY) (N02AX02)
     Route: 048
  11. LAXOBERAL [Suspect]
     Active Substance: SODIUM PICOSULFATE
     Indication: PRODUCT USED FOR UNKNOWN INDICATION
     Dosage: 10 DF (10-20 DROPS (UNKNOWN START / END DATE - NOT IN USE NOW) (A06AB08)
     Route: 048
  12. VOLTAREN [Suspect]
     Active Substance: DICLOFENAC SODIUM
     Indication: PAIN
     Dosage: 1 DF, Q8H (1 X 3 (UNKNOWN START / END DATE - NOT IN USE NOW/M01AB05 - DIKLOFENAK)
     Route: 048
  13. PINEX FORTE [Suspect]
     Active Substance: ACETAMINOPHEN\CODEINE PHOSPHATE
     Indication: PAIN
     Dosage: 1 DF, PRN (1-2 TABLETS AGAINT HEAVY PAIN) (N02AJ06)
     Route: 048
  14. SAROTEX [Suspect]
     Active Substance: AMITRIPTYLINE HYDROCHLORIDE
     Indication: PAIN
     Dosage: 10 MICROEQUIVALENT
     Route: 048

REACTIONS (1)
  - Haematoma [Not Recovered/Not Resolved]
